FAERS Safety Report 6731969-8 (Version None)
Quarter: 2010Q2

REPORT INFORMATION
  Report Type: 
  Country: None (occurrence: None)
  Receive Date: 20100519
  Receipt Date: 20100505
  Transmission Date: 20101027
  Serious: Yes (Other)
  Sender: FDA-Public Use
  Company Number: PHEH2009US00888

PATIENT
  Sex: Male

DRUGS (21)
  1. ELIDEL [Suspect]
     Indication: RASH
     Dosage: UNK
     Dates: start: 20040430
  2. METHOTREXATE [Concomitant]
  3. CHLORHEXIDINE GLUCONATE [Concomitant]
  4. AMOXICILLIN [Concomitant]
  5. TRIAMCINOLONE [Concomitant]
  6. SULFAMETHOXAZOLE [Concomitant]
  7. MERCAPTOPURINE [Concomitant]
  8. AZITHROMYCIN [Concomitant]
  9. PYRIDOXINE HCL [Concomitant]
  10. VANCOMYCIN [Concomitant]
     Dosage: 225 MG, TID
  11. BACTRIM [Concomitant]
     Dosage: 40 MG, BID
  12. MERCAPTOPURINE [Concomitant]
  13. CEFTAZIDIME [Concomitant]
  14. CEFTRIAXONE [Concomitant]
  15. FAMOTIDINE [Concomitant]
  16. HYDROCORTISONE [Concomitant]
  17. BLOOD CELLS, PACKED HUMAN [Concomitant]
  18. DEXAMETHASONE [Concomitant]
     Dosage: UNK
  19. PEPCID [Concomitant]
     Dosage: UNK
  20. PREDNISONE [Concomitant]
  21. VINCRISTINE [Concomitant]

REACTIONS (39)
  - ACUTE LYMPHOCYTIC LEUKAEMIA [None]
  - ALOPECIA [None]
  - ARTHROPOD BITE [None]
  - CATHETER PLACEMENT [None]
  - CHEST PAIN [None]
  - CONVULSION [None]
  - DIARRHOEA [None]
  - DYSHIDROSIS [None]
  - DYSPNOEA [None]
  - EXFOLIATIVE RASH [None]
  - FOOT FRACTURE [None]
  - GENE MUTATION [None]
  - HERPES ZOSTER [None]
  - HYPERCALCAEMIA [None]
  - JOINT STIFFNESS [None]
  - LIMB INJURY [None]
  - LUNG INFILTRATION [None]
  - LYMPHOPENIA [None]
  - MOLLUSCUM CONTAGIOSUM [None]
  - MYALGIA [None]
  - NEUTROPENIA [None]
  - NORMOCHROMIC NORMOCYTIC ANAEMIA [None]
  - OEDEMA [None]
  - ORAL PAIN [None]
  - PAIN IN EXTREMITY [None]
  - PETECHIAE [None]
  - PNEUMONIA [None]
  - PYREXIA [None]
  - RASH [None]
  - RASH PRURITIC [None]
  - RESPIRATORY SYNCYTIAL VIRUS INFECTION [None]
  - STOMATITIS [None]
  - SWOLLEN TONGUE [None]
  - THROMBOCYTOPENIA [None]
  - UPPER RESPIRATORY TRACT INFECTION [None]
  - URINARY TRACT INFECTION [None]
  - URTICARIA PAPULAR [None]
  - VIRAL INFECTION [None]
  - VIRAL RASH [None]
